FAERS Safety Report 17576807 (Version 2)
Quarter: 2021Q4

REPORT INFORMATION
  Report Type: Other
  Country: US (occurrence: US)
  Receive Date: 20200324
  Receipt Date: 20211004
  Transmission Date: 20220303
  Serious: Yes (Death, Other)
  Sender: FDA-Public Use
  Company Number: US-ACORDA-ACO_163418_2020

PATIENT
  Age: 78 Year
  Sex: Female

DRUGS (2)
  1. INBRIJA [Suspect]
     Active Substance: LEVODOPA
     Indication: Parkinson^s disease
     Dosage: CONTENTS OF 2 CAPSULES (84 MILLIGRAM), PRN NOT TO EXCEED 5 DOSES A DAY
     Dates: start: 202001
  2. INBRIJA [Suspect]
     Active Substance: LEVODOPA
     Indication: On and off phenomenon

REACTIONS (11)
  - Death [Fatal]
  - Product physical issue [Unknown]
  - Product residue present [Unknown]
  - Device occlusion [Unknown]
  - Hypopnoea [Unknown]
  - Dizziness [Unknown]
  - Sleep disorder [Unknown]
  - Parkinson^s disease [Unknown]
  - Gastrooesophageal reflux disease [Unknown]
  - Drug ineffective [Unknown]
  - Fall [Unknown]

NARRATIVE: CASE EVENT DATE: 20210306
